FAERS Safety Report 5956902-8 (Version None)
Quarter: 2008Q4

REPORT INFORMATION
  Report Type: 
  Country: None (occurrence: None)
  Receive Date: 20081118
  Receipt Date: 20081110
  Transmission Date: 20090506
  Serious: Yes (Other)
  Sender: FDA-Public Use
  Company Number: US-JNJFOC-20071106262

PATIENT
  Sex: Female
  Weight: 69.4 kg

DRUGS (6)
  1. ORTHO EVRA [Suspect]
     Route: 062
  2. ORTHO EVRA [Suspect]
     Indication: CONTRACEPTION
     Route: 062
  3. WELLBUTRIN [Concomitant]
  4. PRILOSEC [Concomitant]
  5. DARVOCET [Concomitant]
  6. CARAFATE [Concomitant]

REACTIONS (4)
  - ABORTION SPONTANEOUS [None]
  - COAGULOPATHY [None]
  - DRUG EXPOSURE DURING PREGNANCY [None]
  - PREGNANCY WITH CONTRACEPTIVE PATCH [None]
